FAERS Safety Report 5986752-8 (Version None)
Quarter: 2008Q4

REPORT INFORMATION
  Report Type: 
  Country: None (occurrence: None)
  Receive Date: 20081209
  Receipt Date: 20081110
  Transmission Date: 20090506
  Serious: No
  Sender: FDA-Public Use
  Company Number: US-BAYER-200814355BCC

PATIENT
  Age: 62 Year
  Sex: Male
  Weight: 88 kg

DRUGS (3)
  1. ALEVE (CAPLET) [Suspect]
     Indication: DRUG USE FOR UNKNOWN INDICATION
     Dosage: TOTAL DAILY DOSE: 440 MG  UNIT DOSE: 220 MG
     Route: 048
     Dates: start: 20081110
  2. ATENOLOL [Concomitant]
  3. LIPITOR [Concomitant]

REACTIONS (1)
  - DYSPEPSIA [None]
